FAERS Safety Report 10956442 (Version 2)
Quarter: 2015Q2

REPORT INFORMATION
  Report Type: Spontaneous
  Country: DE (occurrence: DE)
  Receive Date: 20150326
  Receipt Date: 20150512
  Transmission Date: 20150821
  Serious: Yes (Other)
  Sender: FDA-Public Use
  Company Number: DE-AMGEN-DEUSP2015026876

PATIENT
  Age: 79 Year
  Sex: Female
  Weight: 35 kg

DRUGS (1)
  1. PROLIA [Suspect]
     Active Substance: DENOSUMAB
     Indication: OSTEOPOROSIS
     Dosage: UNK
     Route: 065
     Dates: start: 201412

REACTIONS (13)
  - Blood parathyroid hormone increased [Unknown]
  - Ventricular extrasystoles [Unknown]
  - Blood calcium decreased [Unknown]
  - Upper limb fracture [Unknown]
  - Weight increased [Unknown]
  - Drug intolerance [Unknown]
  - Sinus tachycardia [Unknown]
  - Fall [Unknown]
  - Supraventricular extrasystoles [Unknown]
  - Electrocardiogram repolarisation abnormality [Unknown]
  - Electrocardiogram ST segment abnormal [Unknown]
  - Rib fracture [Unknown]
  - Dizziness [Not Recovered/Not Resolved]

NARRATIVE: CASE EVENT DATE: 201412
